FAERS Safety Report 9774265 (Version 1)
Quarter: 2013Q4

REPORT INFORMATION
  Report Type: Spontaneous
  Country: RO (occurrence: RO)
  Receive Date: 20131220
  Receipt Date: 20131220
  Transmission Date: 20140711
  Serious: Yes (Life-Threatening, Hospitalization, Other)
  Sender: FDA-Public Use
  Company Number: RO-TEVA-450257ISR

PATIENT
  Sex: 0

DRUGS (2)
  1. CARBAMAZEPINE [Suspect]
  2. RISPERIDONE [Suspect]

REACTIONS (2)
  - Poisoning [Recovered/Resolved]
  - Electrocardiogram QT prolonged [Recovered/Resolved]
